FAERS Safety Report 12175371 (Version 5)
Quarter: 2016Q4

REPORT INFORMATION
  Report Type: Report from Study
  Country: US (occurrence: US)
  Receive Date: 20160314
  Receipt Date: 20161122
  Transmission Date: 20170207
  Serious: Yes (Hospitalization)
  Sender: FDA-Public Use
  Company Number: US-JNJFOC-20160311191

PATIENT
  Age: 17 Year
  Sex: Female
  Weight: 56.3 kg

DRUGS (2)
  1. VEDOLIZUMAB [Concomitant]
     Active Substance: VEDOLIZUMAB
     Indication: INFLAMMATORY BOWEL DISEASE
     Route: 065
     Dates: start: 20141118
  2. REMICADE [Suspect]
     Active Substance: INFLIXIMAB
     Indication: PRODUCT USED FOR UNKNOWN INDICATION
     Route: 042

REACTIONS (3)
  - Anaemia [Recovered/Resolved]
  - Intestinal obstruction [Recovered/Resolved with Sequelae]
  - Dehydration [Recovered/Resolved]

NARRATIVE: CASE EVENT DATE: 20150528
